FAERS Safety Report 16888046 (Version 2)
Quarter: 2020Q1

REPORT INFORMATION
  Report Type: Report from Study
  Country: None (occurrence: US)
  Receive Date: 20191006
  Receipt Date: 20200107
  Transmission Date: 20200409
  Serious: Yes (Other)
  Sender: FDA-Public Use
  Company Number: US-ABBVIE-19K-163-2823274-00

PATIENT
  Age: 65 Year
  Sex: Female
  Weight: 95.34 kg

DRUGS (3)
  1. HUMIRA [Suspect]
     Active Substance: ADALIMUMAB
     Route: 058
     Dates: start: 201909
  2. ZITHROMAX [Concomitant]
     Active Substance: AZITHROMYCIN DIHYDRATE
     Indication: PRODUCT USED FOR UNKNOWN INDICATION
  3. HUMIRA [Suspect]
     Active Substance: ADALIMUMAB
     Indication: PSORIATIC ARTHROPATHY
     Route: 058
     Dates: start: 20190117, end: 201909

REACTIONS (8)
  - Eye inflammation [Unknown]
  - Macular oedema [Recovering/Resolving]
  - Eye irritation [Unknown]
  - Eye disorder [Unknown]
  - Vision blurred [Recovering/Resolving]
  - Upper respiratory tract infection [Unknown]
  - Sinusitis [Recovered/Resolved]
  - Sinusitis [Recovered/Resolved]

NARRATIVE: CASE EVENT DATE: 2019
